FAERS Safety Report 5498371-0 (Version None)
Quarter: 2007Q4

REPORT INFORMATION
  Report Type: 
  Country: None (occurrence: None)
  Receive Date: 20071025
  Receipt Date: 20071018
  Transmission Date: 20080405
  Serious: Yes (Death)
  Sender: FDA-Public Use
  Company Number: US-GENENTECH-250079

PATIENT

DRUGS (1)
  1. OMALIZUMAB [Suspect]
     Indication: ASTHMA
     Dates: start: 20041108

REACTIONS (1)
  - DEATH [None]
